FAERS Safety Report 7248385-5 (Version None)
Quarter: 2011Q1

REPORT INFORMATION
  Report Type: 
  Country: None (occurrence: None)
  Receive Date: 20110127
  Receipt Date: 20110118
  Transmission Date: 20110831
  Serious: Yes (Hospitalization, Other)
  Sender: FDA-Public Use
  Company Number: US-ASTRAZENECA-2011SE03140

PATIENT
  Age: 82 Year
  Sex: Female

DRUGS (2)
  1. SEROQUEL [Suspect]
     Indication: HALLUCINATIONS, MIXED
     Route: 048
     Dates: start: 20090101
  2. SEROQUEL [Suspect]
     Route: 048

REACTIONS (4)
  - CARDIAC FAILURE CONGESTIVE [None]
  - RENAL FAILURE [None]
  - HOSPITALISATION [None]
  - WEIGHT DECREASED [None]
